FAERS Safety Report 9464569 (Version 2)
Quarter: 2020Q3

REPORT INFORMATION
  Report Type: Report from Study
  Country: NL (occurrence: NL)
  Receive Date: 20130819
  Receipt Date: 20130819
  Transmission Date: 20201104
  Serious: Yes (Hospitalization)
  Sender: FDA-Public Use
  Company Number: NL-JNJFOC-20130115216

PATIENT
  Sex: Female

DRUGS (12)
  1. QUESTRAN [Concomitant]
     Active Substance: CHOLESTYRAMINE
     Indication: CROHN^S DISEASE
     Route: 048
  2. FOLIC ACID. [Concomitant]
     Active Substance: FOLIC ACID
     Indication: CROHN^S DISEASE
     Route: 048
     Dates: start: 20120216
  3. USTEKINUMAB [Suspect]
     Active Substance: USTEKINUMAB
     Route: 042
  4. CIPRALEX [Concomitant]
     Active Substance: ESCITALOPRAM OXALATE
     Route: 048
     Dates: start: 20120905
  5. RESOURCE NUTRITIONAL SUPPLEMENT [Concomitant]
     Indication: CROHN^S DISEASE
     Route: 048
     Dates: start: 20120827
  6. COLIFOAM [Concomitant]
     Active Substance: HYDROCORTISONE
     Indication: CROHN^S DISEASE
     Route: 054
     Dates: start: 20120907
  7. PANTOPRAZOLE [Concomitant]
     Active Substance: PANTOPRAZOLE
     Route: 048
     Dates: start: 20120828
  8. CERNEVIT [Concomitant]
     Active Substance: VITAMINS
     Indication: CROHN^S DISEASE
     Route: 042
     Dates: start: 20120428
  9. GLUCOSE [Concomitant]
     Active Substance: DEXTROSE
     Indication: CROHN^S DISEASE
     Route: 042
     Dates: start: 20120830
  10. USTEKINUMAB [Suspect]
     Active Substance: USTEKINUMAB
     Indication: CROHN^S DISEASE
     Route: 042
     Dates: start: 20121219
  11. METHOTREXATE. [Concomitant]
     Active Substance: METHOTREXATE
     Indication: CROHN^S DISEASE
     Route: 058
     Dates: start: 20120216
  12. PENTACOL [Concomitant]
     Indication: CROHN^S DISEASE
     Route: 048
     Dates: start: 19980101

REACTIONS (1)
  - Clostridium difficile infection [Recovered/Resolved]

NARRATIVE: CASE EVENT DATE: 20130121
